FAERS Safety Report 19593643 (Version 2)
Quarter: 2021Q3

REPORT INFORMATION
  Report Type: Spontaneous
  Country: US (occurrence: US)
  Receive Date: 20210722
  Receipt Date: 20210804
  Transmission Date: 20211014
  Serious: Yes (Death, Hospitalization)
  Sender: FDA-Public Use
  Company Number: US-PFIZER INC-2021886984

PATIENT
  Age: 65 Year
  Sex: Female

DRUGS (1)
  1. VERAPAMIL HCL [Suspect]
     Active Substance: VERAPAMIL HYDROCHLORIDE
     Dosage: UNK (INGESTED 10 TO 20 TABLETS)
     Route: 048

REACTIONS (3)
  - Toxicity to various agents [Fatal]
  - Cardiogenic shock [Fatal]
  - Overdose [Fatal]
